FAERS Safety Report 21024455 (Version 1)
Quarter: 2022Q2

REPORT INFORMATION
  Report Type: Report from Study
  Country: US (occurrence: US)
  Receive Date: 20220629
  Receipt Date: 20220629
  Transmission Date: 20220721
  Serious: No
  Sender: FDA-Public Use
  Company Number: US-LUNDBECK-DKLU3049379

PATIENT
  Age: 34 Year
  Sex: Female

DRUGS (10)
  1. VYEPTI [Suspect]
     Active Substance: EPTINEZUMAB-JJMR
     Indication: Migraine
     Route: 041
     Dates: start: 20200728
  2. VYEPTI [Suspect]
     Active Substance: EPTINEZUMAB-JJMR
     Route: 041
  3. VYEPTI [Suspect]
     Active Substance: EPTINEZUMAB-JJMR
     Route: 041
  4. VYEPTI [Suspect]
     Active Substance: EPTINEZUMAB-JJMR
     Route: 041
  5. VYEPTI [Suspect]
     Active Substance: EPTINEZUMAB-JJMR
     Route: 041
  6. VYEPTI [Suspect]
     Active Substance: EPTINEZUMAB-JJMR
     Route: 041
  7. VYEPTI [Suspect]
     Active Substance: EPTINEZUMAB-JJMR
     Route: 041
  8. VYEPTI [Suspect]
     Active Substance: EPTINEZUMAB-JJMR
     Route: 041
  9. VYEPTI [Suspect]
     Active Substance: EPTINEZUMAB-JJMR
     Route: 041
     Dates: start: 20220525
  10. BOTOX [Concomitant]
     Active Substance: ONABOTULINUMTOXINA
     Indication: Migraine
     Route: 065

REACTIONS (3)
  - Tooth disorder [Unknown]
  - Headache [Unknown]
  - Therapeutic response delayed [Unknown]
